FAERS Safety Report 6935866-4 (Version None)
Quarter: 2010Q3

REPORT INFORMATION
  Report Type: 
  Country: None (occurrence: None)
  Receive Date: 20100823
  Receipt Date: 20100809
  Transmission Date: 20110219
  Serious: No
  Sender: FDA-Public Use
  Company Number: US-ROXANE LABORATORIES, INC.-2010-RO-01118RO

PATIENT
  Sex: Male

DRUGS (2)
  1. FLUTICASONE PROPIONATE [Suspect]
     Indication: RHINITIS ALLERGIC
     Route: 045
     Dates: start: 20100719, end: 20100726
  2. CONCERTA [Concomitant]
     Dosage: 18 MG

REACTIONS (2)
  - ANOSMIA [None]
  - SINUSITIS [None]
